FAERS Safety Report 8974365 (Version 1)
Quarter: 2012Q4

REPORT INFORMATION
  Report Type: 
  Country: US (occurrence: US)
  Receive Date: 20121219
  Receipt Date: 20121219
  Transmission Date: 20130627
  Serious: No
  Sender: FDA-Public Use
  Company Number: US-AMGEN-USASP2012059395

PATIENT
  Age: 62 Year
  Sex: Female

DRUGS (9)
  1. PROLIA [Suspect]
     Indication: OSTEOPOROSIS POSTMENOPAUSAL
     Dosage: UNK
     Dates: start: 201109
  2. PROPRANOLOL [Concomitant]
     Dosage: UNK
  3. FLEXERIL                           /00428402/ [Concomitant]
     Dosage: UNK
  4. ADVAIR [Concomitant]
     Dosage: UNK
  5. VALIUM                             /00017001/ [Concomitant]
     Dosage: UNK
  6. BENADRYL                           /00000402/ [Concomitant]
     Dosage: UNK
  7. SLEEP MD [Concomitant]
     Dosage: UNK
  8. CALCIUM [Concomitant]
     Dosage: UNK
  9. VITAMIN D3 [Concomitant]
     Dosage: UNK

REACTIONS (3)
  - Myalgia [Recovered/Resolved]
  - Cataract [Not Recovered/Not Resolved]
  - Arthralgia [Recovered/Resolved]
